FAERS Safety Report 4405649-8 (Version None)
Quarter: 2004Q3

REPORT INFORMATION
  Report Type: 
  Country: None (occurrence: None)
  Receive Date: 20040723
  Receipt Date: 20031030
  Transmission Date: 20050211
  Serious: No
  Sender: FDA-Public Use
  Company Number: US-GLAXOSMITHKLINE-A0432321A

PATIENT
  Sex: Male

DRUGS (2)
  1. AVANDIA [Suspect]
     Indication: ILL-DEFINED DISORDER
     Route: 048
  2. TYLENOL [Concomitant]
     Indication: ILL-DEFINED DISORDER

REACTIONS (3)
  - MYALGIA [None]
  - PAIN IN EXTREMITY [None]
  - STOMACH DISCOMFORT [None]
